FAERS Safety Report 24961127 (Version 2)
Quarter: 2025Q1

REPORT INFORMATION
  Report Type: Spontaneous
  Country: DE (occurrence: DE)
  Receive Date: 20250212
  Receipt Date: 20250305
  Transmission Date: 20250408
  Serious: Yes (Other)
  Sender: BAYER HEALTHCARE PHARMACEUTICALS INC.
  Company Number: DE-BAYER-2024A062620

PATIENT
  Age: 84 Year
  Sex: Male
  Weight: 61 kg

DRUGS (3)
  1. NUBEQA [Suspect]
     Active Substance: DAROLUTAMIDE
     Indication: Prostate cancer
     Route: 048
     Dates: start: 20240124, end: 20240515
  2. DOCETAXEL [Concomitant]
     Active Substance: DOCETAXEL
     Indication: Prostate cancer
     Route: 042
     Dates: start: 20240130, end: 20240418
  3. TRIPTORELIN PAMOATE [Concomitant]
     Active Substance: TRIPTORELIN PAMOATE
     Indication: Prostate cancer
     Route: 058
     Dates: start: 20231221, end: 20240515

REACTIONS (5)
  - Aortic arteriosclerosis [Not Recovered/Not Resolved]
  - Angina pectoris [None]
  - Carcinoid tumour of the gastrointestinal tract [None]
  - Anaemia [Not Recovered/Not Resolved]
  - Vertigo [None]

NARRATIVE: CASE EVENT DATE: 20240418
